FAERS Safety Report 13932436 (Version 2)
Quarter: 2017Q3

REPORT INFORMATION
  Report Type: Spontaneous
  Country: ES (occurrence: ES)
  Receive Date: 20170904
  Receipt Date: 20170926
  Transmission Date: 20171127
  Serious: Yes (Life-Threatening, Hospitalization, Other)
  Sender: FDA-Public Use
  Company Number: ES-JNJFOC-20170828631

PATIENT
  Age: 74 Year
  Sex: Female
  Weight: 67 kg

DRUGS (4)
  1. DARATUMUMAB [Suspect]
     Active Substance: DARATUMUMAB
     Indication: POEMS SYNDROME
     Route: 042
     Dates: start: 20170811, end: 20170811
  2. DARATUMUMAB [Suspect]
     Active Substance: DARATUMUMAB
     Indication: PLASMA CELL MYELOMA
     Route: 042
     Dates: start: 20170811, end: 20170811
  3. DARATUMUMAB [Suspect]
     Active Substance: DARATUMUMAB
     Indication: POEMS SYNDROME
     Dosage: 1 DOSAGE
     Route: 042
     Dates: start: 20170811, end: 20170811
  4. DARATUMUMAB [Suspect]
     Active Substance: DARATUMUMAB
     Indication: PLASMA CELL MYELOMA
     Dosage: 1 DOSAGE
     Route: 042
     Dates: start: 20170811, end: 20170811

REACTIONS (10)
  - Stress cardiomyopathy [Recovered/Resolved]
  - Off label use [Unknown]
  - Bronchospasm [Recovered/Resolved]
  - Nausea [Recovered/Resolved]
  - Product use in unapproved indication [Unknown]
  - Infusion related reaction [Recovered/Resolved]
  - Cough [Recovered/Resolved]
  - Sinus node dysfunction [Recovered/Resolved]
  - Tachycardia [Recovered/Resolved]
  - Bradycardia [Recovered/Resolved]

NARRATIVE: CASE EVENT DATE: 201708
